FAERS Safety Report 7542993-X (Version None)
Quarter: 2011Q2

REPORT INFORMATION
  Report Type: 
  Country: None (occurrence: None)
  Receive Date: 20110613
  Receipt Date: 20110601
  Transmission Date: 20111010
  Serious: Yes (Other)
  Sender: FDA-Public Use
  Company Number: PHHY2011BR48599

PATIENT
  Sex: Female

DRUGS (3)
  1. RITALIN LA [Suspect]
     Dosage: 40 MG, QD
  2. CYMBALTA [Suspect]
     Dosage: 120 MG, QD
  3. LAMOTRIGINE [Suspect]
     Dosage: 150 MG, QD

REACTIONS (1)
  - DEPRESSION [None]
